FAERS Safety Report 6704849-1 (Version None)
Quarter: 2010Q2

REPORT INFORMATION
  Report Type: 
  Country: None (occurrence: None)
  Receive Date: 20100430
  Receipt Date: 20091221
  Transmission Date: 20101027
  Serious: No
  Sender: FDA-Public Use
  Company Number: US-ASTRAZENECA-2009SE32982

PATIENT
  Sex: Male
  Weight: 76.2 kg

DRUGS (1)
  1. NEXIUM [Suspect]
     Indication: REFLUX OESOPHAGITIS
     Route: 048
     Dates: start: 20010101

REACTIONS (2)
  - DYSPEPSIA [None]
  - REFLUX OESOPHAGITIS [None]
